FAERS Safety Report 25802264 (Version 1)
Quarter: 2025Q3

REPORT INFORMATION
  Report Type: Spontaneous
  Country: IN (occurrence: IN)
  Receive Date: 20250915
  Receipt Date: 20250915
  Transmission Date: 20251020
  Serious: Yes (Other)
  Sender: ALKEM
  Company Number: IN-ALKEM LABORATORIES LIMITED-MA-ALKEM-2025-09573

PATIENT
  Age: 39 Year
  Sex: Male

DRUGS (1)
  1. DICLOFENAC [Suspect]
     Active Substance: DICLOFENAC
     Indication: Postoperative analgesia
     Route: 013

REACTIONS (3)
  - Gangrene [Unknown]
  - Accidental exposure to product [Unknown]
  - Vasospasm [Unknown]
